FAERS Safety Report 18935768 (Version 1)
Quarter: 2021Q1

REPORT INFORMATION
  Report Type: Spontaneous
  Country: FR (occurrence: FR)
  Receive Date: 20210225
  Receipt Date: 20210225
  Transmission Date: 20210420
  Serious: Yes (Other)
  Sender: FDA-Public Use
  Company Number: FR-AUROBINDO-AUR-APL-2021-007860

PATIENT
  Age: 56 Year
  Sex: Female

DRUGS (19)
  1. ERLOTINIB [Suspect]
     Active Substance: ERLOTINIB
     Indication: LUNG ADENOCARCINOMA
     Dosage: UNK
     Route: 065
     Dates: start: 200612, end: 201502
  2. GEMCITABINE. [Suspect]
     Active Substance: GEMCITABINE
     Indication: PRODUCT USED FOR UNKNOWN INDICATION
     Dosage: UNK(3 CYCLES)
     Route: 065
  3. AFATINIB [Suspect]
     Active Substance: AFATINIB
     Dosage: 30 MILLIGRAM, DAILY
     Route: 065
     Dates: start: 201710
  4. AFATINIB [Suspect]
     Active Substance: AFATINIB
     Dosage: 30 MILLIGRAM, DAILY
     Route: 065
     Dates: start: 201804
  5. PEMETREXED. [Suspect]
     Active Substance: PEMETREXED
     Indication: PRODUCT USED FOR UNKNOWN INDICATION
     Dosage: UNK (4 CYCLES)
     Route: 065
  6. CARBOPLATIN. [Suspect]
     Active Substance: CARBOPLATIN
     Indication: LUNG ADENOCARCINOMA
     Dosage: UNK
     Route: 065
     Dates: start: 200612, end: 201502
  7. AFATINIB [Suspect]
     Active Substance: AFATINIB
     Dosage: 40 MILLIGRAM, DAILY (AFTER 2 WEEK)
     Route: 065
     Dates: end: 201703
  8. GEMCITABINE. [Suspect]
     Active Substance: GEMCITABINE
     Indication: LUNG ADENOCARCINOMA
     Dosage: UNK (SIX CYCLES)
     Route: 065
     Dates: start: 201204, end: 201308
  9. PACLITAXEL. [Suspect]
     Active Substance: PACLITAXEL
     Indication: LUNG ADENOCARCINOMA
     Dosage: UNK (11 CYCLES WEEKLY)
     Route: 065
     Dates: start: 201408, end: 201411
  10. VINORELBINE [Suspect]
     Active Substance: VINORELBINE TARTRATE
     Indication: LUNG ADENOCARCINOMA
     Dosage: UNK
     Route: 065
     Dates: start: 200612, end: 201502
  11. ATEZOLIZUMAB. [Suspect]
     Active Substance: ATEZOLIZUMAB
     Indication: LUNG ADENOCARCINOMA
     Dosage: UNK (SIX CYCLES)
     Route: 065
     Dates: start: 201808, end: 201812
  12. DOCETAXEL. [Suspect]
     Active Substance: DOCETAXEL
     Indication: LUNG ADENOCARCINOMA
     Dosage: UNK
     Route: 065
     Dates: start: 200612, end: 201502
  13. GEFITINIB. [Suspect]
     Active Substance: GEFITINIB
     Indication: LUNG ADENOCARCINOMA
     Dosage: UNK
     Route: 065
     Dates: start: 200612, end: 201502
  14. GEMCITABINE. [Suspect]
     Active Substance: GEMCITABINE
     Dosage: UNK (10 CYCLES)
     Route: 065
     Dates: start: 201311, end: 201407
  15. AFATINIB [Suspect]
     Active Substance: AFATINIB
     Indication: PRODUCT USED FOR UNKNOWN INDICATION
     Dosage: UNK
     Route: 065
  16. AFATINIB [Suspect]
     Active Substance: AFATINIB
     Indication: LUNG ADENOCARCINOMA
     Dosage: 40 MILLIGRAM, ONCE A DAY(AFTER 1 MONTH)
     Route: 065
  17. AFATINIB [Suspect]
     Active Substance: AFATINIB
     Dosage: 40 MILLIGRAM, DAILY (AFTER 2 WEEK)
     Route: 065
  18. AFATINIB [Suspect]
     Active Substance: AFATINIB
     Dosage: 30 MILLIGRAM, ONCE A DAY
     Route: 065
     Dates: start: 201502
  19. PEMETREXED. [Suspect]
     Active Substance: PEMETREXED
     Indication: LUNG ADENOCARCINOMA
     Dosage: UNK (10 CYCLES)
     Route: 065
     Dates: start: 201204, end: 201308

REACTIONS (4)
  - Pyrexia [Unknown]
  - Hypoxia [Unknown]
  - Lung infiltration [Unknown]
  - Cough [Unknown]
